FAERS Safety Report 13643074 (Version 9)
Quarter: 2021Q1

REPORT INFORMATION
  Report Type: Spontaneous
  Country: US (occurrence: US)
  Receive Date: 20170612
  Receipt Date: 20210330
  Transmission Date: 20210419
  Serious: Yes (Congenital Anomaly, Other)
  Sender: FDA-Public Use
  Company Number: PHEH2017US017666

PATIENT
  Sex: Male

DRUGS (2)
  1. ZOFRAN ODT [Suspect]
     Active Substance: ONDANSETRON HYDROCHLORIDE
     Indication: FOETAL EXPOSURE DURING PREGNANCY
     Route: 064
  2. ONDANSETRON PLIVA [Suspect]
     Active Substance: ONDANSETRON HYDROCHLORIDE
     Indication: FOETAL EXPOSURE DURING PREGNANCY
     Dosage: MOTHER^S DOSE: 1 DF, EVERY 4 TO 6 HOURS
     Route: 064

REACTIONS (43)
  - Left ventricular hypertrophy [Unknown]
  - Left atrial dilatation [Unknown]
  - Coarctation of the aorta [Unknown]
  - Rhinorrhoea [Unknown]
  - Hyperhidrosis [Unknown]
  - Oedema [Unknown]
  - Atelectasis [Unknown]
  - Dyspnoea [Unknown]
  - Shone complex [Unknown]
  - Ventricular hypoplasia [Unknown]
  - Dizziness [Unknown]
  - Chest pain [Unknown]
  - Hypertension [Unknown]
  - Emotional distress [Unknown]
  - Confusional state [Unknown]
  - Hypoplastic left heart syndrome [Unknown]
  - Heart disease congenital [Unknown]
  - Bicuspid aortic valve [Unknown]
  - Deafness neurosensory [Unknown]
  - Pain [Unknown]
  - Upper respiratory tract infection [Unknown]
  - Nasopharyngitis [Unknown]
  - Right ventricular hypertrophy [Unknown]
  - Aorta hypoplasia [Unknown]
  - Cardiomegaly [Unknown]
  - Nasal congestion [Unknown]
  - Anxiety [Unknown]
  - Deformity [Unknown]
  - Mitral valve hypoplasia [Unknown]
  - Fever neonatal [Unknown]
  - Jaundice [Unknown]
  - Ear infection [Unknown]
  - Left ventricular dilatation [Unknown]
  - Foetal exposure during pregnancy [Unknown]
  - Cough [Unknown]
  - Pericardial effusion [Unknown]
  - Laevocardia [Unknown]
  - Pulmonary artery dilatation [Unknown]
  - Mitral valve stenosis [Unknown]
  - Syncope [Unknown]
  - Cyanosis [Unknown]
  - Injury [Unknown]
  - Swelling face [Unknown]
